FAERS Safety Report 9187413 (Version 1)
Quarter: 2013Q1

REPORT INFORMATION
  Report Type: Spontaneous
  Country: US (occurrence: US)
  Receive Date: 20130325
  Receipt Date: 20130325
  Transmission Date: 20140127
  Serious: Yes (Other)
  Sender: FDA-Public Use
  Company Number: US-BAYER-2013-033544

PATIENT
  Age: 33 Year
  Sex: Female

DRUGS (2)
  1. ALEVE [Suspect]
     Indication: PREMEDICATION
     Dosage: TIW
  2. REBIF [Suspect]
     Dosage: 44 ?G, TIW
     Route: 058
     Dates: start: 20101027

REACTIONS (1)
  - Eye haemorrhage [None]
